FAERS Safety Report 8014422-3 (Version None)
Quarter: 2011Q4

REPORT INFORMATION
  Report Type: 
  Country: None (occurrence: None)
  Receive Date: 20111229
  Receipt Date: 20111222
  Transmission Date: 20120403
  Serious: Yes (Hospitalization)
  Sender: FDA-Public Use
  Company Number: PHHY2011IR112700

PATIENT
  Age: 72 Year
  Sex: Female

DRUGS (1)
  1. DIGOXIN [Suspect]

REACTIONS (3)
  - HEADACHE [None]
  - VERTIGO [None]
  - ABDOMINAL PAIN UPPER [None]
